FAERS Safety Report 5245113-X (Version None)
Quarter: 2007Q1

REPORT INFORMATION
  Report Type: 
  Country: None (occurrence: None)
  Receive Date: 20070223
  Receipt Date: 20070212
  Transmission Date: 20070707
  Serious: Yes (Other)
  Sender: FDA-Public Use
  Company Number: PHNR2006AU01710

PATIENT

DRUGS (1)
  1. FAMVIR [Suspect]
     Indication: HERPES ZOSTER
     Dosage: 250 MG, QD

REACTIONS (4)
  - CREATININE RENAL CLEARANCE DECREASED [None]
  - DIARRHOEA [None]
  - RENAL IMPAIRMENT [None]
  - TRANSPLANT FAILURE [None]
